FAERS Safety Report 9157282 (Version 1)
Quarter: 2013Q1

REPORT INFORMATION
  Report Type: Spontaneous
  Country: ES (occurrence: ES)
  Receive Date: 20130312
  Receipt Date: 20130312
  Transmission Date: 20140127
  Serious: Yes (Other)
  Sender: FDA-Public Use
  Company Number: ES-PFIZER INC-2013080160

PATIENT
  Age: 63 Year
  Sex: Female

DRUGS (6)
  1. TAZOCEL [Suspect]
     Indication: PYREXIA
     Dosage: 4 G, 4X/DAY
     Route: 042
     Dates: start: 20120805, end: 20120823
  2. XENETIX [Concomitant]
     Dosage: 300 MG, 1X/DAY
     Route: 042
     Dates: start: 20120821, end: 20120821
  3. LINEZOLID [Concomitant]
     Dosage: 600 MG, 2X/DAY
     Route: 042
     Dates: start: 20120805, end: 20120809
  4. MEROPENEM [Concomitant]
     Dosage: 1 G, 3X/DAY
     Route: 042
     Dates: start: 20120824
  5. DAPTOMYCIN [Concomitant]
     Dosage: 350 MG, 1X/DAY
     Route: 042
     Dates: start: 20120809, end: 20120814
  6. VANCOMYCIN [Concomitant]
     Dosage: 1 G, 2X/DAY
     Route: 042
     Dates: start: 20120814, end: 20120821

REACTIONS (1)
  - Drug reaction with eosinophilia and systemic symptoms [Recovered/Resolved]
